FAERS Safety Report 26105015 (Version 1)
Quarter: 2025Q4

REPORT INFORMATION
  Report Type: Spontaneous
  Country: US (occurrence: US)
  Receive Date: 20251130
  Receipt Date: 20251130
  Transmission Date: 20260118
  Serious: Yes (Other)
  Sender: ALKEM
  Company Number: None

PATIENT
  Age: 7 Decade
  Sex: Male

DRUGS (7)
  1. MYCOPHENOLATE MOFETIL [Suspect]
     Active Substance: MYCOPHENOLATE MOFETIL
     Indication: Acute macular neuroretinopathy
     Dosage: 2 GRAM, QD (EVERY 1 DAY)
     Route: 065
  2. MYCOPHENOLATE MOFETIL [Suspect]
     Active Substance: MYCOPHENOLATE MOFETIL
     Indication: Autoimmune retinopathy
  3. CYCLOSPORINE [Suspect]
     Active Substance: CYCLOSPORINE
     Indication: Acute macular neuroretinopathy
     Dosage: 200 MILLIGRAM, QD (EVERY 1 DAY)
     Route: 065
  4. CYCLOSPORINE [Suspect]
     Active Substance: CYCLOSPORINE
     Indication: Autoimmune retinopathy
  5. Immunoglobulin [Concomitant]
     Indication: Acute macular neuroretinopathy
     Dosage: 2 GRAM PER KILOGRAM (MONTHLY)
     Route: 042
  6. Immunoglobulin [Concomitant]
     Indication: Autoimmune retinopathy
     Dosage: 1 GRAM PER KILOGRAM
     Route: 042
  7. Immunoglobulin [Concomitant]
     Dosage: UNK (LAST DOSE)
     Route: 065

REACTIONS (1)
  - Neutropenia [Unknown]
